FAERS Safety Report 5141208-X (Version None)
Quarter: 2006Q4

REPORT INFORMATION
  Report Type: 
  Country: None (occurrence: None)
  Receive Date: 20061026
  Receipt Date: 20061013
  Transmission Date: 20070319
  Serious: Yes (Death)
  Sender: FDA-Public Use
  Company Number: 2006129301

PATIENT
  Age: 56 Year
  Sex: Female

DRUGS (4)
  1. CELEBREX [Suspect]
     Dosage: ORAL
     Route: 048
  2. . [Concomitant]
  3. BEXTRA [Suspect]
     Dosage: ORAL
     Route: 048
  4. VIOXX [Suspect]
     Dosage: ORAL
     Route: 048
     Dates: start: 20001101, end: 20041101

REACTIONS (3)
  - CHRONIC OBSTRUCTIVE PULMONARY DISEASE [None]
  - HYPERTENSION [None]
  - MYOCARDIAL INFARCTION [None]
